FAERS Safety Report 6430793-3 (Version None)
Quarter: 2009Q4

REPORT INFORMATION
  Report Type: 
  Country: None (occurrence: None)
  Receive Date: 20091103
  Receipt Date: 20091022
  Transmission Date: 20100525
  Serious: Yes (Hospitalization)
  Sender: FDA-Public Use
  Company Number: 230046M09FRA

PATIENT
  Age: 26 Year
  Sex: Female

DRUGS (2)
  1. REBIF [Suspect]
     Indication: MULTIPLE SCLEROSIS
     Dosage: 44 MCG, 3 IN 1 WEEKS, SUBCUTANEOUS
     Route: 058
     Dates: start: 20060321
  2. DIANE (DIANE) [Suspect]
     Indication: ACNE
     Dosage: 1 DOSAGE FORMS, 1 IN 1 DAYS, ORAL
     Route: 048
     Dates: end: 20090309

REACTIONS (1)
  - COLITIS ISCHAEMIC [None]
